FAERS Safety Report 7905955-6 (Version None)
Quarter: 2011Q4

REPORT INFORMATION
  Report Type: 
  Country: None (occurrence: None)
  Receive Date: 20111110
  Receipt Date: 20111102
  Transmission Date: 20120403
  Serious: Yes (Disabling)
  Sender: FDA-Public Use
  Company Number: GXKR2011DE03173

PATIENT
  Sex: Male

DRUGS (1)
  1. DICLO SL 1A PHARMA [Suspect]
     Indication: BACK PAIN
     Dosage: 75 MG, QD
     Route: 048

REACTIONS (4)
  - MOTOR DYSFUNCTION [None]
  - FALL [None]
  - PARAESTHESIA [None]
  - HYPOAESTHESIA [None]
